FAERS Safety Report 16759493 (Version 1)
Quarter: 2019Q3

REPORT INFORMATION
  Report Type: Spontaneous
  Country: ES (occurrence: ES)
  Receive Date: 20190830
  Receipt Date: 20190830
  Transmission Date: 20191005
  Serious: Yes (Hospitalization)
  Sender: FDA-Public Use
  Company Number: ES-009507513-1908ESP010125

PATIENT
  Age: 31 Year
  Sex: Male

DRUGS (1)
  1. PROPECIA 1 MG COMPRIMIDOS RECUBIERTOS CON PEL?CULA [Suspect]
     Active Substance: FINASTERIDE
     Dosage: UNK
     Route: 048
     Dates: start: 20080805, end: 2019

REACTIONS (1)
  - Seminoma [Recovered/Resolved]

NARRATIVE: CASE EVENT DATE: 20190805
